FAERS Safety Report 4866466-8 (Version None)
Quarter: 2005Q4

REPORT INFORMATION
  Report Type: 
  Country: None (occurrence: None)
  Receive Date: 20051227
  Receipt Date: 20041119
  Transmission Date: 20060501
  Serious: Yes (Hospitalization)
  Sender: FDA-Public Use
  Company Number: US-MERCK-0411USA03460

PATIENT
  Age: 78 Year
  Sex: Female
  Weight: 69 kg

DRUGS (14)
  1. VIOXX [Suspect]
     Indication: OSTEOARTHRITIS
     Route: 048
     Dates: end: 20021120
  2. CENTRUM [Concomitant]
     Indication: MEDICAL DIET
     Route: 048
  3. PREVACID [Concomitant]
     Indication: GASTROOESOPHAGEAL REFLUX DISEASE
     Route: 048
  4. EXTRA STRENGTH TYLENOL [Concomitant]
     Indication: PAIN
     Route: 048
  5. POSTURE D [Concomitant]
     Indication: OSTEOPOROSIS
     Route: 048
  6. HYDROCHLOROTHIAZIDE [Concomitant]
     Indication: HYPERTENSION
     Route: 048
  7. EVISTA [Concomitant]
     Indication: OSTEOPOROSIS
     Route: 048
  8. PAMELOR [Concomitant]
     Indication: SLEEP DISORDER
     Route: 048
  9. PAMELOR [Concomitant]
     Indication: AFFECTIVE DISORDER
     Route: 048
  10. LASIX [Concomitant]
     Route: 048
  11. DIOVAN [Concomitant]
     Route: 048
  12. ACTONEL [Concomitant]
     Indication: OSTEOPOROSIS
     Route: 048
  13. ASPIRIN [Concomitant]
     Route: 048
  14. ATENOLOL [Concomitant]
     Route: 048

REACTIONS (10)
  - ACUTE MYOCARDIAL INFARCTION [None]
  - BLOOD PRESSURE DECREASED [None]
  - CARDIAC FAILURE [None]
  - EJECTION FRACTION DECREASED [None]
  - GASTROOESOPHAGEAL REFLUX DISEASE [None]
  - HAEMATOCRIT DECREASED [None]
  - HAEMATOMA [None]
  - HEART RATE DECREASED [None]
  - HYPERTENSION [None]
  - SOFT TISSUE INJURY [None]
